FAERS Safety Report 18561181 (Version 1)
Quarter: 2020Q4

REPORT INFORMATION
  Report Type: Spontaneous
  Country: US (occurrence: US)
  Receive Date: 20201130
  Receipt Date: 20201130
  Transmission Date: 20210114
  Serious: No
  Sender: FDA-Public Use
  Company Number: US-ELI_LILLY_AND_COMPANY-US202011008807

PATIENT
  Age: 37 Year
  Sex: Female

DRUGS (1)
  1. EMGALITY [Suspect]
     Active Substance: GALCANEZUMAB-GNLM
     Indication: MIGRAINE
     Dosage: 240 MG, LOADING DOSE
     Route: 058
     Dates: start: 20201101

REACTIONS (9)
  - Emotional disorder [Recovering/Resolving]
  - Constipation [Recovering/Resolving]
  - Oral mucosal blistering [Recovering/Resolving]
  - Arthralgia [Recovering/Resolving]
  - Migraine [Recovered/Resolved]
  - Hot flush [Recovering/Resolving]
  - Swelling face [Recovering/Resolving]
  - Peripheral swelling [Recovering/Resolving]
  - Erythema [Recovering/Resolving]
